FAERS Safety Report 12745485 (Version 2)
Quarter: 2016Q3

REPORT INFORMATION
  Report Type: Spontaneous
  Country: US (occurrence: US)
  Receive Date: 20160915
  Receipt Date: 20160916
  Transmission Date: 20161109
  Serious: Yes (Hospitalization)
  Sender: FDA-Public Use
  Company Number: US-PFIZER INC-2016427614

PATIENT
  Age: 69 Year
  Sex: Female
  Weight: 59 kg

DRUGS (2)
  1. RAPAMUNE [Suspect]
     Active Substance: SIROLIMUS
     Indication: IMMUNOSUPPRESSION
     Dosage: 1 MG TABLET- TWO PILLS ONE DAY AND ONE PILL THE NEXT DAY ALTERNATING
     Dates: end: 201607
  2. MYFORTIC [Suspect]
     Active Substance: MYCOPHENOLATE SODIUM
     Dosage: UNK
     Dates: end: 20141201

REACTIONS (7)
  - Urinary tract infection [Recovered/Resolved]
  - Viral infection [Unknown]
  - Colitis [Unknown]
  - Glycosylated haemoglobin decreased [Unknown]
  - Somnolence [Recovered/Resolved]
  - Diarrhoea [Unknown]
  - Pyrexia [Recovered/Resolved]

NARRATIVE: CASE EVENT DATE: 20160830
